FAERS Safety Report 7490312 (Version 4)
Quarter: 2012Q4

REPORT INFORMATION
  Report Type: 
  Country: US (occurrence: US)
  Receive Date: 20100720
  Receipt Date: 20121203
  Transmission Date: 20130627
  Serious: Yes (Other)
  Sender: FDA-Public Use
  Company Number: PHEH2010US03499

PATIENT
  Age: 53 None
  Sex: Female

DRUGS (1)
  1. AREDIA [Suspect]
     Indication: MULTIPLE MYELOMA
     Dosage: UNK
     Dates: start: 1999

REACTIONS (5)
  - Renal cancer [Unknown]
  - Nasal turbinate hypertrophy [Unknown]
  - Hip fracture [Unknown]
  - Headache [Unknown]
  - Diastolic hypertension [Unknown]
